FAERS Safety Report 24315051 (Version 1)
Quarter: 2024Q3

REPORT INFORMATION
  Report Type: Spontaneous
  Country: DE (occurrence: DE)
  Receive Date: 20240913
  Receipt Date: 20240913
  Transmission Date: 20241016
  Serious: Yes (Hospitalization)
  Sender: BOEHRINGER INGELHEIM
  Company Number: DE-BoehringerIngelheim-2024-BI-049974

PATIENT
  Age: 58 Year
  Sex: Female

DRUGS (2)
  1. JARDIANCE [Suspect]
     Active Substance: EMPAGLIFLOZIN
     Indication: Product used for unknown indication
  2. METFORMIN [Concomitant]
     Active Substance: METFORMIN HYDROCHLORIDE
     Indication: Product used for unknown indication

REACTIONS (9)
  - Tonsillitis [Unknown]
  - Acute kidney injury [Unknown]
  - Post infection glomerulonephritis [Unknown]
  - Viral upper respiratory tract infection [Unknown]
  - Lactic acidosis [Unknown]
  - Ketoacidosis [Unknown]
  - Multiple organ dysfunction syndrome [Unknown]
  - Oedematous pancreatitis [Unknown]
  - Ventricular tachycardia [Recovered/Resolved]

NARRATIVE: CASE EVENT DATE: 20240601
